FAERS Safety Report 6906958-0 (Version None)
Quarter: 2010Q3

REPORT INFORMATION
  Report Type: 
  Country: None (occurrence: None)
  Receive Date: 20100804
  Receipt Date: 20080119
  Transmission Date: 20110219
  Serious: No
  Sender: FDA-Public Use
  Company Number: US-PFIZER INC-2008006418

PATIENT
  Sex: Male
  Weight: 81.818 kg

DRUGS (4)
  1. NARDIL [Suspect]
     Indication: DEPRESSION
  2. ANTIINFLAMMATORY/ANTIRHEUMATIC NON-STEROIDS [Suspect]
     Dates: start: 20070101
  3. INDOMETHACIN [Interacting]
     Indication: GOUT
     Dates: start: 20080114
  4. COLCHICINE [Interacting]
     Indication: GOUT
     Dates: start: 20080114

REACTIONS (4)
  - CARDIAC DISCOMFORT [None]
  - DRUG INTERACTION [None]
  - GOUT [None]
  - HEADACHE [None]
